FAERS Safety Report 9709644 (Version 1)
Quarter: 2013Q4

REPORT INFORMATION
  Report Type: Other
  Country: US (occurrence: US)
  Receive Date: 20131126
  Receipt Date: 20131126
  Transmission Date: 20140711
  Serious: Yes (Other)
  Sender: FDA-Public Use
  Company Number: US-SHIRE-ALL1-2013-07919

PATIENT
  Age: 13 Year
  Sex: Male

DRUGS (1)
  1. ELAPRASE [Suspect]
     Indication: MUCOPOLYSACCHARIDOSIS II
     Dosage: 24 MG (4 VIALS), 1X/WEEK
     Route: 041
     Dates: start: 20070716

REACTIONS (5)
  - Spinal fracture [Unknown]
  - Respiratory disorder [Unknown]
  - Developmental hip dysplasia [Unknown]
  - Influenza [Recovering/Resolving]
  - Arthralgia [Not Recovered/Not Resolved]
